FAERS Safety Report 21395516 (Version 1)
Quarter: 2022Q3

REPORT INFORMATION
  Report Type: Spontaneous
  Country: CN (occurrence: CN)
  Receive Date: 20220930
  Receipt Date: 20220930
  Transmission Date: 20221026
  Serious: Yes (Other)
  Sender: FDA-Public Use
  Company Number: CN-OTSUKA-2022_045724

PATIENT
  Age: 44 Year
  Sex: Female
  Weight: 57 kg

DRUGS (8)
  1. CARTEOLOL HYDROCHLORIDE [Suspect]
     Active Substance: CARTEOLOL HYDROCHLORIDE
     Indication: Glaucoma
     Route: 047
     Dates: start: 20220907, end: 20220907
  2. CARTEOLOL HYDROCHLORIDE [Suspect]
     Active Substance: CARTEOLOL HYDROCHLORIDE
     Indication: Conjunctivitis
     Route: 047
     Dates: start: 20220916, end: 20220916
  3. GATIFLOXACIN [Concomitant]
     Active Substance: GATIFLOXACIN
     Indication: Glaucoma
     Dosage: OPHTHALMIC GEL
     Route: 065
     Dates: start: 20220907
  4. GATIFLOXACIN [Concomitant]
     Active Substance: GATIFLOXACIN
     Indication: Conjunctivitis
  5. BRINZOLAMIDE [Concomitant]
     Active Substance: BRINZOLAMIDE
     Indication: Glaucoma
     Route: 065
     Dates: start: 20220907
  6. BRINZOLAMIDE [Concomitant]
     Active Substance: BRINZOLAMIDE
     Indication: Conjunctivitis
  7. GANCICLOVIR [Concomitant]
     Active Substance: GANCICLOVIR
     Indication: Glaucoma
     Route: 047
  8. GANCICLOVIR [Concomitant]
     Active Substance: GANCICLOVIR
     Indication: Conjunctivitis

REACTIONS (5)
  - Erythema of eyelid [Recovering/Resolving]
  - Swelling of eyelid [Recovering/Resolving]
  - Pruritus [Recovering/Resolving]
  - Lacrimation increased [Recovering/Resolving]
  - Conjunctival hyperaemia [Recovering/Resolving]

NARRATIVE: CASE EVENT DATE: 20220907
